FAERS Safety Report 20080000 (Version 1)
Quarter: 2021Q4

REPORT INFORMATION
  Report Type: Spontaneous
  Country: FR (occurrence: FR)
  Receive Date: 20211117
  Receipt Date: 20211117
  Transmission Date: 20220303
  Serious: Yes (Other)
  Sender: FDA-Public Use
  Company Number: None

PATIENT
  Age: 58 Year
  Sex: Female

DRUGS (4)
  1. AMOXICILLIN [Suspect]
     Active Substance: AMOXICILLIN
     Indication: Dental implantation
     Dosage: 3 GRAM DAILY; 1 G X3 / DAY
     Route: 048
     Dates: start: 20210909, end: 20210919
  2. PREDNISOLONE SODIUM METAZOATE [Suspect]
     Active Substance: PREDNISOLONE SODIUM METAZOATE
     Indication: Dental implantation
     Dosage: 80 MG
     Route: 048
     Dates: start: 20210909, end: 20210913
  3. MINOXIDIL [Concomitant]
     Active Substance: MINOXIDIL
     Indication: Alopecia
     Dosage: UNIT DOSE :7 DOSAGE FORMS ,7 SPRAYS PER DAY
     Dates: start: 20210129
  4. DOLIPRANE [Concomitant]
     Active Substance: ACETAMINOPHEN
     Indication: Dental implantation
     Dosage: 1000 MG
     Route: 048
     Dates: start: 20210909, end: 20210910

REACTIONS (2)
  - Jaundice [Recovering/Resolving]
  - Mixed liver injury [Recovering/Resolving]

NARRATIVE: CASE EVENT DATE: 20210901
